FAERS Safety Report 5689838-0 (Version None)
Quarter: 2008Q1

REPORT INFORMATION
  Report Type: 
  Country: None (occurrence: None)
  Receive Date: 20080331
  Receipt Date: 20080331
  Transmission Date: 20080703
  Serious: No
  Sender: FDA-Public Use
  Company Number: None

PATIENT
  Age: 37 Year
  Sex: Male
  Weight: 81.6475 kg

DRUGS (2)
  1. CHANTIX [Suspect]
     Indication: SMOKING CESSATION THERAPY
     Dosage: 1 MG 2X DAY PO
     Route: 048
     Dates: start: 20080220, end: 20080329
  2. CHANTIX [Suspect]
     Indication: TOBACCO USER
     Dosage: 1 MG 2X DAY PO
     Route: 048
     Dates: start: 20080220, end: 20080329

REACTIONS (7)
  - ANOREXIA [None]
  - ANXIETY [None]
  - EMOTIONAL DISORDER [None]
  - FATIGUE [None]
  - FEELING ABNORMAL [None]
  - IMPAIRED WORK ABILITY [None]
  - NO THERAPEUTIC RESPONSE [None]
